FAERS Safety Report 7293884-3 (Version None)
Quarter: 2011Q1

REPORT INFORMATION
  Report Type: 
  Country: None (occurrence: None)
  Receive Date: 20110202
  Receipt Date: 20110119
  Transmission Date: 20110831
  Serious: Yes (Other)
  Sender: FDA-Public Use
  Company Number: DSJ-2011-01290

PATIENT
  Age: 46 Year
  Sex: Female

DRUGS (2)
  1. VENICAR (OLMESARTAN MEDOXOMIL) (TABLET) (OLMESARTAN MEDOXOMIL) [Suspect]
     Indication: HYPERTENSION
     Dosage: 20 MG (20 MG, 1 IN 1 D), PER ORAL; 40 MG (20 MG, 2 IN 1 D), PER ORAL
     Route: 048
     Dates: start: 20110119
  2. VENICAR (OLMESARTAN MEDOXOMIL) (TABLET) (OLMESARTAN MEDOXOMIL) [Suspect]
     Indication: HYPERTENSION
     Dosage: 20 MG (20 MG, 1 IN 1 D), PER ORAL; 40 MG (20 MG, 2 IN 1 D), PER ORAL
     Route: 048
     Dates: start: 20090713, end: 20110118

REACTIONS (3)
  - LABYRINTHITIS [None]
  - DIZZINESS [None]
  - DRUG INEFFECTIVE [None]
